FAERS Safety Report 9701429 (Version 2)
Quarter: 2013Q4

REPORT INFORMATION
  Report Type: Spontaneous
  Country: US (occurrence: US)
  Receive Date: 20131121
  Receipt Date: 20131121
  Transmission Date: 20140711
  Serious: No
  Sender: FDA-Public Use
  Company Number: US-GILEAD-2008-0015950

PATIENT
  Sex: Female
  Weight: 62.6 kg

DRUGS (10)
  1. LETAIRIS [Suspect]
     Indication: PULMONARY ARTERIAL HYPERTENSION
     Route: 048
     Dates: start: 20080318
  2. TRUSOPT [Concomitant]
     Route: 047
  3. ALPHAGAN [Concomitant]
     Route: 047
  4. TORSEMIDE [Concomitant]
     Route: 048
  5. COUMADIN [Concomitant]
     Route: 048
  6. LUMIGAN [Concomitant]
     Route: 047
  7. METOPROLOL [Concomitant]
     Route: 048
  8. OXYGEN [Concomitant]
     Route: 045
  9. DILTIAZEM ER [Concomitant]
     Route: 048
  10. POTASSIUM CHLORIDE [Concomitant]
     Route: 048

REACTIONS (1)
  - Nasal congestion [Unknown]
